FAERS Safety Report 8122118-2 (Version None)
Quarter: 2012Q1

REPORT INFORMATION
  Report Type: 
  Country: None (occurrence: None)
  Receive Date: 20120208
  Receipt Date: 20120206
  Transmission Date: 20120608
  Serious: Yes (Other)
  Sender: FDA-Public Use
  Company Number: US-BAYER-2012-012231

PATIENT
  Age: 69 Year
  Sex: Female

DRUGS (20)
  1. NEXIUM [Concomitant]
     Dosage: 20 MG, UNK
  2. ACETAMINOPHEN [Concomitant]
     Dosage: 325 MG, UNK
  3. BETASERON [Suspect]
     Dosage: 0.25 MG, QOD
     Route: 058
  4. ASCORBIC ACID [Concomitant]
     Dosage: 1000 MG, UNK
  5. AMANTADINE HCL [Concomitant]
     Dosage: 100 MG, UNK
  6. FOLIC ACID [Concomitant]
  7. CENTRUM [Concomitant]
  8. PROVIGIL [Concomitant]
     Dosage: 100 MG, UNK
  9. CALCIUM D [Concomitant]
  10. LIPITOR [Concomitant]
     Dosage: 20 MG, UNK
  11. VITAMIN D [Concomitant]
     Dosage: 1000 UNITS UNK
  12. ALISKIREN [Concomitant]
     Dosage: 150 MG, UNK
  13. PLAVIX [Concomitant]
     Dosage: 75 MG, UNK
  14. VITAMIN B-12 [Concomitant]
     Dosage: 2000 ?G, UNK
  15. GABAPENTIN [Concomitant]
     Dosage: 100 MG, UNK
  16. ZINC SULFATE [Concomitant]
     Dosage: 30 MG, UNK
  17. AZELASTINE HCL [Concomitant]
     Dosage: 0.05 UNK, UNK
  18. AMLODIPINE [Concomitant]
  19. OSTEO [Concomitant]
  20. BIOTIN [Concomitant]
     Dosage: 5000 UNITS, UNK

REACTIONS (3)
  - MASS [None]
  - SWOLLEN TONGUE [None]
  - PAIN [None]
